FAERS Safety Report 4967661-X (Version None)
Quarter: 2006Q2

REPORT INFORMATION
  Report Type: 
  Country: None (occurrence: None)
  Receive Date: 20060410
  Receipt Date: 20051215
  Transmission Date: 20061013
  Serious: Yes (Hospitalization, Disabling)
  Sender: FDA-Public Use
  Company Number: US-MERCK-0512USA02527

PATIENT
  Age: 60 Year
  Sex: Male
  Weight: 95 kg

DRUGS (11)
  1. VIOXX [Suspect]
     Indication: BACK PAIN
     Route: 048
     Dates: start: 20000809, end: 20040826
  2. VIOXX [Suspect]
     Indication: PAIN IN EXTREMITY
     Route: 048
     Dates: start: 20000809, end: 20040826
  3. PREDNISONE [Concomitant]
     Indication: ARTHRITIS
     Route: 065
     Dates: start: 20001031, end: 20021031
  4. BAYCOL [Concomitant]
     Indication: BLOOD CHOLESTEROL INCREASED
     Route: 065
     Dates: start: 19990201
  5. OXYCODONE [Concomitant]
     Indication: PAIN
     Route: 065
     Dates: start: 20030901, end: 20050401
  6. ROXICET [Concomitant]
     Indication: PAIN
     Route: 065
     Dates: start: 20030501, end: 20030528
  7. ASPIRIN [Concomitant]
     Route: 065
  8. LIPITOR [Concomitant]
     Indication: BLOOD CHOLESTEROL INCREASED
     Route: 065
     Dates: start: 20030403, end: 20050425
  9. VICODIN [Concomitant]
     Indication: PAIN
     Route: 065
     Dates: start: 20030101, end: 20030101
  10. PERCOCET [Concomitant]
     Indication: PAIN
     Route: 065
  11. AMITRIPTYLINE PAMOATE [Concomitant]
     Indication: PAIN
     Route: 065
     Dates: start: 19971118, end: 20021204

REACTIONS (2)
  - CORONARY ARTERY DISEASE [None]
  - MYOCARDIAL INFARCTION [None]
